FAERS Safety Report 7825651-3 (Version None)
Quarter: 2011Q4

REPORT INFORMATION
  Report Type: 
  Country: None (occurrence: None)
  Receive Date: 20111019
  Receipt Date: 20111011
  Transmission Date: 20120403
  Serious: Yes (Death, Other)
  Sender: FDA-Public Use
  Company Number: CN-CELGENEUS-035-20785-11101277

PATIENT

DRUGS (4)
  1. BORTEZOMIB [Concomitant]
     Indication: MULTIPLE MYELOMA
     Dosage: OR 1.6MG/M2 ON DAY 1,8,15 AND 22
     Route: 041
  2. MELPHALAN HYDROCHLORIDE [Concomitant]
     Indication: MULTIPLE MYELOMA
     Dosage: 12 MILLIGRAM
     Route: 048
  3. DEXAMETHASONE [Concomitant]
     Indication: MULTIPLE MYELOMA
     Dosage: 20-40MG
     Route: 065
  4. THALIDOMIDE [Suspect]
     Indication: MULTIPLE MYELOMA
     Dosage: 100 MILLIGRAM
     Route: 048

REACTIONS (16)
  - OEDEMA PERIPHERAL [None]
  - HERPES ZOSTER [None]
  - THROMBOCYTOPENIA [None]
  - DIARRHOEA [None]
  - JAUNDICE [None]
  - ABDOMINAL DISTENSION [None]
  - INTESTINAL OBSTRUCTION [None]
  - LUNG INFECTION [None]
  - RENAL FAILURE [None]
  - LIVER INJURY [None]
  - RESPIRATORY TRACT INFECTION [None]
  - URINARY RETENTION [None]
  - NEUROPATHY PERIPHERAL [None]
  - CONSTIPATION [None]
  - MULTIPLE MYELOMA [None]
  - OLIGURIA [None]
